FAERS Safety Report 8975993 (Version 1)
Quarter: 2012Q4

REPORT INFORMATION
  Report Type: Report from Study
  Country: BR (occurrence: BR)
  Receive Date: 20121219
  Receipt Date: 20121219
  Transmission Date: 20130627
  Serious: Yes (Death, Hospitalization)
  Sender: FDA-Public Use
  Company Number: BR-ROCHE-1165547

PATIENT
  Sex: Female

DRUGS (2)
  1. RITUXIMAB [Suspect]
     Indication: DERMATOMYOSITIS
     Route: 065
  2. NITAZOXANIDE [Suspect]
     Indication: DERMATOMYOSITIS
     Route: 065
     Dates: start: 20120818

REACTIONS (9)
  - Multi-organ failure [Fatal]
  - Cardiac disorder [Fatal]
  - Sepsis [Fatal]
  - Hypothyroidism [Fatal]
  - Oral candidiasis [Unknown]
  - Eating disorder [Unknown]
  - Asthenia [Unknown]
  - Epistaxis [Unknown]
  - Diabetes mellitus [Fatal]
